FAERS Safety Report 12212178 (Version 2)
Quarter: 2016Q2

REPORT INFORMATION
  Report Type: Spontaneous
  Country: HK (occurrence: HK)
  Receive Date: 20160325
  Receipt Date: 20160506
  Transmission Date: 20160815
  Serious: Yes (Death)
  Sender: FDA-Public Use
  Company Number: HK-ASTRAZENECA-2016SE30571

PATIENT
  Sex: Male
  Weight: 59 kg

DRUGS (9)
  1. MORPHINE [Concomitant]
     Active Substance: MORPHINE
  2. DEXAMETHASONE. [Concomitant]
     Active Substance: DEXAMETHASONE
  3. INNOHEP [Concomitant]
     Active Substance: TINZAPARIN SODIUM
  4. TAGRISSO [Suspect]
     Active Substance: OSIMERTINIB
     Indication: LUNG ADENOCARCINOMA STAGE IV
     Dosage: TAGRISSO, 80 MG DAILY
     Route: 048
     Dates: start: 20160120, end: 20160218
  5. GABAPENTIN. [Concomitant]
     Active Substance: GABAPENTIN
  6. TAGRISSO [Suspect]
     Active Substance: OSIMERTINIB
     Indication: LUNG ADENOCARCINOMA STAGE IV
     Route: 048
  7. TAGRISSO [Suspect]
     Active Substance: OSIMERTINIB
     Indication: LUNG ADENOCARCINOMA STAGE IV
     Route: 048
     Dates: start: 20160303, end: 20160311
  8. TRAMADOL. [Concomitant]
     Active Substance: TRAMADOL
  9. PANADOL [Concomitant]
     Active Substance: ACETAMINOPHEN
     Indication: PAIN
     Dosage: 500 MG, FOUR TIMES A DAY AS REQUIRED
     Route: 048
     Dates: start: 201601

REACTIONS (2)
  - Back pain [Unknown]
  - Condition aggravated [Fatal]
